FAERS Safety Report 9316637 (Version 1)
Quarter: 2013Q2

REPORT INFORMATION
  Report Type: Spontaneous
  Country: US (occurrence: US)
  Receive Date: 20130530
  Receipt Date: 20130530
  Transmission Date: 20140414
  Serious: Yes (Hospitalization)
  Sender: FDA-Public Use
  Company Number: US-BAYER-2013-065990

PATIENT
  Age: 31 Year
  Sex: Female
  Weight: 59.86 kg

DRUGS (10)
  1. SAFYRAL [Suspect]
  2. BEYAZ [Suspect]
  3. BUPROPION [Concomitant]
     Dosage: 300 MG, UNK
     Dates: start: 20110413
  4. BUPROPION [Concomitant]
     Dosage: 300 MG, UNK
     Dates: start: 20110528
  5. BUPROPION [Concomitant]
     Dosage: 300 MG, UNK
     Dates: start: 20110619
  6. BUPROPION [Concomitant]
     Dosage: 300 MG, UNK
     Dates: start: 20110727
  7. TEMAZEPAM [Concomitant]
     Dosage: 30 MG, UNK
     Dates: start: 20110428
  8. BUPROPION SR [Concomitant]
     Dosage: 150 MG, UNK
     Dates: start: 20110512
  9. BUPROPION SR [Concomitant]
     Dosage: 150 MG, UNK
     Dates: start: 20110614
  10. WELLBUTRIN [Concomitant]

REACTIONS (3)
  - Pulmonary embolism [None]
  - Pulmonary infarction [None]
  - Haemoptysis [None]
